FAERS Safety Report 15012847 (Version 1)
Quarter: 2018Q2

REPORT INFORMATION
  Report Type: Report from Study
  Country: ES (occurrence: ES)
  Receive Date: 20180614
  Receipt Date: 20180614
  Transmission Date: 20180711
  Serious: Yes (Hospitalization)
  Sender: FDA-Public Use
  Company Number: ES-PFIZER INC-2018236235

PATIENT
  Age: 56 Year
  Sex: Male

DRUGS (10)
  1. 5-FU /00098801/ [Suspect]
     Active Substance: FLUOROURACIL
     Indication: COLORECTAL CANCER METASTATIC
     Dosage: 4217 MG, CYCLIC
     Route: 041
     Dates: start: 20150406, end: 20150406
  2. RUSCUS LLORENS [Concomitant]
     Dosage: UNK
     Route: 065
     Dates: start: 20150504
  3. DUPHALAC [Concomitant]
     Active Substance: LACTULOSE
     Dosage: UNK
     Route: 065
     Dates: start: 20150504
  4. IRINOTECAN HCL [Suspect]
     Active Substance: IRINOTECAN HYDROCHLORIDE
     Indication: COLORECTAL CANCER METASTATIC
     Dosage: 316 MG, CYCLIC
     Route: 065
     Dates: start: 20150406, end: 20150406
  5. DAFLON /00426001/ [Concomitant]
     Active Substance: DIOSMIN
     Dosage: UNK
     Route: 065
     Dates: start: 20150511
  6. ZALTRAP [Suspect]
     Active Substance: ZIV-AFLIBERCEPT
     Indication: COLORECTAL CANCER METASTATIC
     Dosage: 296 MG, CYCLIC
     Route: 041
     Dates: start: 20150406, end: 20150406
  7. MYCOSTATIN [Concomitant]
     Active Substance: NYSTATIN
     Dosage: UNK
     Route: 065
     Dates: start: 20150525
  8. 5-FU /00098801/ [Suspect]
     Active Substance: FLUOROURACIL
     Dosage: 703 MG, CYCLIC
     Route: 040
     Dates: start: 20150406, end: 20150406
  9. LEUCOVORIN /00566701/ [Suspect]
     Active Substance: LEUCOVORIN
     Indication: COLORECTAL CANCER METASTATIC
     Dosage: 703 MG, CYCLIC
     Route: 041
     Dates: start: 20150406, end: 20150406
  10. IBUPROFEN. [Concomitant]
     Active Substance: IBUPROFEN
     Dosage: UNK
     Route: 065
     Dates: start: 20150511

REACTIONS (1)
  - Pelvic fluid collection [Recovered/Resolved]

NARRATIVE: CASE EVENT DATE: 20151012
